FAERS Safety Report 8219628-6 (Version None)
Quarter: 2012Q1

REPORT INFORMATION
  Report Type: 
  Country: None (occurrence: None)
  Receive Date: 20120307
  Receipt Date: 20101116
  Transmission Date: 20120608
  Serious: Yes (Hospitalization)
  Sender: FDA-Public Use
  Company Number: PHHY2010US77936

PATIENT
  Age: 55 Year
  Sex: Female

DRUGS (1)
  1. AFINITOR [Suspect]
     Indication: ADRENAL CARCINOMA
     Dosage: 10 MG, DAILY, ORAL
     Route: 048
     Dates: start: 20101022

REACTIONS (2)
  - BACK PAIN [None]
  - NEOPLASM MALIGNANT [None]
